FAERS Safety Report 6303896-1 (Version None)
Quarter: 2009Q3

REPORT INFORMATION
  Report Type: 
  Country: None (occurrence: None)
  Receive Date: 20090805
  Receipt Date: 20090723
  Transmission Date: 20100115
  Serious: Yes (Hospitalization)
  Sender: FDA-Public Use
  Company Number: TPA2009A02032

PATIENT
  Age: 78 Year
  Sex: Male

DRUGS (4)
  1. KAPIDEX [Suspect]
     Indication: DRUG USE FOR UNKNOWN INDICATION
     Dosage: PER ORAL
     Route: 048
     Dates: start: 20090101, end: 20090101
  2. VERAPAMIL [Suspect]
     Dates: end: 20090101
  3. ASPIRIN [Concomitant]
  4. PLAVIX [Concomitant]

REACTIONS (1)
  - ATRIOVENTRICULAR BLOCK COMPLETE [None]
